FAERS Safety Report 8983789 (Version 2)
Quarter: 2013Q1

REPORT INFORMATION
  Report Type: Report from Study
  Country: GB (occurrence: GB)
  Receive Date: 20121224
  Receipt Date: 20130228
  Transmission Date: 20140127
  Serious: Yes (Hospitalization)
  Sender: FDA-Public Use
  Company Number: GB-ROCHE-1169319

PATIENT
  Sex: Male
  Weight: 61 kg

DRUGS (12)
  1. RITUXIMAB [Suspect]
     Indication: RHEUMATOID ARTHRITIS
     Route: 065
     Dates: start: 20090324
  2. METHOTREXATE [Concomitant]
     Route: 065
  3. ADCAL-D3 [Concomitant]
     Dosage: 2 TABLETS
     Route: 048
  4. CIPROFLOXACIN [Concomitant]
     Route: 065
  5. FOLIC ACID [Concomitant]
     Route: 065
  6. CO-BENELDOPA [Concomitant]
     Dosage: 25/100 1 TABLET MANE
     Route: 065
  7. CO-BENELDOPA [Concomitant]
     Dosage: 12.5/50; 1 TABLET- 12 NOON
     Route: 065
  8. VITAMIN B COMPLEX [Concomitant]
     Dosage: STRONG 2 TABLETS
     Route: 065
  9. SENNA [Concomitant]
     Dosage: 2 TABLETS
     Route: 065
  10. ROPINIROLE [Concomitant]
     Route: 065
  11. TERBINAFINE [Concomitant]
     Route: 065
  12. ALENDRONIC ACID [Concomitant]
     Route: 065

REACTIONS (3)
  - Urinary tract infection [Recovered/Resolved]
  - Urinary retention [Recovered/Resolved]
  - Delirium [Recovered/Resolved]
